FAERS Safety Report 25642436 (Version 2)
Quarter: 2025Q4

REPORT INFORMATION
  Report Type: Report from Study
  Country: US (occurrence: US)
  Receive Date: 20250805
  Receipt Date: 20251111
  Transmission Date: 20260118
  Serious: No
  Sender: KYOWA
  Company Number: US-KYOWAKIRIN-2025KK014665

PATIENT

DRUGS (8)
  1. BUROSUMAB [Suspect]
     Active Substance: BUROSUMAB
     Indication: Hereditary hypophosphataemic rickets
     Dosage: 80 MG, 1X/4 WEEKS (80 MG (2 X 30 MG AND 1 X 20 MG))
     Route: 058
     Dates: start: 20250706
  2. BUROSUMAB [Suspect]
     Active Substance: BUROSUMAB
     Indication: Hereditary hypophosphataemic rickets
     Dosage: 80 MG, 1X/4 WEEKS ((2 X 30 MG AND 1 X 20 MG))
     Route: 058
     Dates: start: 20250706
  3. BUROSUMAB [Suspect]
     Active Substance: BUROSUMAB
     Indication: Hereditary hypophosphataemic rickets
     Dosage: UNK, 1X/4 WEEKS
     Route: 065
     Dates: start: 20250709
  4. AIRSUPRA [BUDESONIDE;SALBUTAMOL] [Concomitant]
     Indication: Product used for unknown indication
     Dosage: 90-80 MCG HFA AER AD
     Route: 065
  5. DULOXETINE HYDROCHLORIDE [Concomitant]
     Active Substance: DULOXETINE HYDROCHLORIDE
     Indication: Product used for unknown indication
     Dosage: 60 MG DR
     Route: 065
  6. AMLODIPINE BESYLATE [Concomitant]
     Active Substance: AMLODIPINE BESYLATE
     Indication: Product used for unknown indication
     Dosage: 10 MG
     Route: 065
  7. ACETAMINOPHEN\HYDROCODONE [Concomitant]
     Active Substance: ACETAMINOPHEN\HYDROCODONE
     Indication: Product used for unknown indication
     Dosage: UNK
     Route: 065
  8. BACLOFEN [Concomitant]
     Active Substance: BACLOFEN
     Indication: Product used for unknown indication
     Dosage: 10 MG
     Route: 065

REACTIONS (2)
  - Myalgia [Not Recovered/Not Resolved]
  - Pain [Recovering/Resolving]

NARRATIVE: CASE EVENT DATE: 20250723
